FAERS Safety Report 25999925 (Version 1)
Quarter: 2025Q4

REPORT INFORMATION
  Report Type: Spontaneous
  Country: US (occurrence: US)
  Receive Date: 20251105
  Receipt Date: 20251105
  Transmission Date: 20260119
  Serious: No
  Sender: GALDERMA
  Company Number: US-GALDERMA-US2025020584

PATIENT

DRUGS (1)
  1. NEMLUVIO [Suspect]
     Active Substance: NEMOLIZUMAB-ILTO
     Indication: Dermatitis atopic
     Dosage: 30 MILLIGRAM, LOADING DOSE,  INJECT 2 PENS UNDER THE SKIN ON DAY 1 THEN 1 PEN EVERY 4 WEEKS THEREAFT
     Route: 058
     Dates: start: 20251014, end: 20251014

REACTIONS (2)
  - Device malfunction [Recovered/Resolved]
  - Incorrect dose administered [Recovered/Resolved]

NARRATIVE: CASE EVENT DATE: 20251014
